FAERS Safety Report 5048513-6 (Version None)
Quarter: 2006Q3

REPORT INFORMATION
  Report Type: 
  Country: None (occurrence: None)
  Receive Date: 20060705
  Receipt Date: 20060622
  Transmission Date: 20061208
  Serious: Yes (Hospitalization)
  Sender: FDA-Public Use
  Company Number: 2006-06-1642

PATIENT
  Age: 64 Year
  Sex: Female

DRUGS (9)
  1. CLARITIN [Suspect]
     Indication: HYPERSENSITIVITY
     Dosage: 10 MG ORAL
     Route: 048
     Dates: start: 20050717, end: 20060615
  2. SERENAL [Suspect]
     Dosage: ORAL
     Route: 048
     Dates: end: 20060616
  3. DICLOFENAC SODIUM [Suspect]
     Dosage: ORAL
     Route: 048
     Dates: end: 20060616
  4. CEPHADOL [Suspect]
     Dosage: ORAL
     Route: 048
     Dates: end: 20060616
  5. STRONG NEO-MINOPHAGEN C [Concomitant]
  6. ANTI-INFLAMMATORY AGENT [Concomitant]
  7. OMEPRAZOLE [Concomitant]
  8. REBAMIPIDE [Concomitant]
  9. ASPARTATE POTASSIUM [Concomitant]

REACTIONS (8)
  - ALANINE AMINOTRANSFERASE INCREASED [None]
  - ASPARTATE AMINOTRANSFERASE INCREASED [None]
  - BLOOD ALKALINE PHOSPHATASE INCREASED [None]
  - GASTRIC ULCER [None]
  - NAUSEA [None]
  - PALPITATIONS [None]
  - THYROID FUNCTION TEST ABNORMAL [None]
  - WEIGHT DECREASED [None]
